FAERS Safety Report 6909553-2 (Version None)
Quarter: 2010Q3

REPORT INFORMATION
  Report Type: 
  Country: None (occurrence: None)
  Receive Date: 20100805
  Receipt Date: 20100726
  Transmission Date: 20110219
  Serious: Yes (Disabling, Other)
  Sender: FDA-Public Use
  Company Number: US-ABBOTT-10P-163-0660147-00

PATIENT
  Sex: Female
  Weight: 72.64 kg

DRUGS (5)
  1. NIASPAN [Suspect]
     Indication: HYPERLIPIDAEMIA
     Route: 048
     Dates: start: 20100701
  2. NIASPAN [Suspect]
     Indication: HYPERLIPIDAEMIA
     Route: 048
     Dates: start: 20100501, end: 20100701
  3. LISINOPRIL [Concomitant]
     Indication: HYPERTENSION
     Route: 048
  4. CRESTOR [Concomitant]
     Indication: HYPERLIPIDAEMIA
     Route: 048
  5. METOPROLOL [Concomitant]
     Indication: PRODUCT USED FOR UNKNOWN INDICATION
     Route: 048

REACTIONS (5)
  - FLUSHING [None]
  - INTERVERTEBRAL DISC PROTRUSION [None]
  - JOINT RANGE OF MOTION DECREASED [None]
  - MUSCLE SPASMS [None]
  - NECK INJURY [None]
